FAERS Safety Report 17709796 (Version 7)
Quarter: 2023Q1

REPORT INFORMATION
  Report Type: Other
  Country: US (occurrence: None)
  Receive Date: 20200427
  Receipt Date: 20230116
  Transmission Date: 20230418
  Serious: Yes (Hospitalization, Other)
  Sender: FDA-Public Use
  Company Number: US-ROCHE-2564390

PATIENT
  Age: 64 Year
  Sex: Female
  Weight: 54.480 kg

DRUGS (7)
  1. CELLCEPT [Suspect]
     Active Substance: MYCOPHENOLATE MOFETIL
     Indication: Renal transplant
     Dosage: 4 CAPS BID, DATE OF TREATMENT: 29/DEC/2019
     Route: 048
  2. CELLCEPT [Suspect]
     Active Substance: MYCOPHENOLATE MOFETIL
     Dosage: 4 CAPSULES IN MORNING AND 4 AT NIGHT
     Route: 048
  3. CELLCEPT [Suspect]
     Active Substance: MYCOPHENOLATE MOFETIL
     Dosage: 2 CAPS BID
     Route: 048
  4. CELLCEPT [Suspect]
     Active Substance: MYCOPHENOLATE MOFETIL
     Dosage: 750 MG BID
     Route: 048
  5. CELLCEPT [Suspect]
     Active Substance: MYCOPHENOLATE MOFETIL
     Dosage: 2 CAPS BID
     Route: 048
  6. CELLCEPT [Suspect]
     Active Substance: MYCOPHENOLATE MOFETIL
     Dosage: 250 MG CAPSULES
     Route: 048
  7. CELLCEPT [Suspect]
     Active Substance: MYCOPHENOLATE MOFETIL
     Indication: Renal transplant
     Route: 048

REACTIONS (18)
  - Pneumonia [Unknown]
  - Blood pressure abnormal [Unknown]
  - Renal impairment [Unknown]
  - Hypertension [Not Recovered/Not Resolved]
  - Cataract [Unknown]
  - Renal disorder [Unknown]
  - White blood cell count decreased [Unknown]
  - Cardiac disorder [Unknown]
  - Memory impairment [Unknown]
  - Amnesia [Unknown]
  - Abdominal pain upper [Unknown]
  - Chest pain [Unknown]
  - Headache [Unknown]
  - Polyuria [Unknown]
  - Diarrhoea [Unknown]
  - COVID-19 [Unknown]
  - Confusional state [Unknown]
  - Off label use [Unknown]

NARRATIVE: CASE EVENT DATE: 20200305
